FAERS Safety Report 9189554 (Version 1)
Quarter: 2013Q1

REPORT INFORMATION
  Report Type: Spontaneous
  Country: US (occurrence: None)
  Receive Date: 20130322
  Receipt Date: 20130322
  Transmission Date: 20140127
  Serious: Yes (Hospitalization)
  Sender: FDA-Public Use
  Company Number: None

PATIENT
  Age: 88 Year
  Sex: Male
  Weight: 76 kg

DRUGS (7)
  1. PRADAXA [Suspect]
     Indication: ATRIAL FIBRILLATION
     Dosage: 150 MG TWICE DAILY ORAL
     Route: 048
  2. FUROSEMIDE [Concomitant]
  3. OMEPRAZOLE [Concomitant]
  4. METOPROLOL [Concomitant]
  5. FERROUS SULFATE [Concomitant]
  6. TYLENOL #3 [Concomitant]
  7. CENTRUM SILVER MULTIVITAMIN [Concomitant]

REACTIONS (6)
  - Malaise [None]
  - Dyspnoea [None]
  - Melaena [None]
  - Anaemia [None]
  - Gastrointestinal haemorrhage [None]
  - Haematochezia [None]
